FAERS Safety Report 6181275-8 (Version None)
Quarter: 2009Q2

REPORT INFORMATION
  Report Type: 
  Country: None (occurrence: None)
  Receive Date: 20090501
  Receipt Date: 20090204
  Transmission Date: 20091009
  Serious: No
  Sender: FDA-Public Use
  Company Number: 2008000612

PATIENT
  Age: 57 Year
  Sex: Male
  Weight: 75.7507 kg

DRUGS (4)
  1. TREANDA [Suspect]
     Indication: CHRONIC LYMPHOCYTIC LEUKAEMIA
     Dosage: 200 MG (200 MG, 1 IN 1 D) , INTRAVENOUS : INTRAVENOUS
     Route: 042
     Dates: start: 20080101, end: 20080101
  2. TREANDA [Suspect]
     Indication: CHRONIC LYMPHOCYTIC LEUKAEMIA
     Dosage: 200 MG (200 MG, 1 IN 1 D) , INTRAVENOUS : INTRAVENOUS
     Route: 042
     Dates: start: 20081009, end: 20081010
  3. RITUXAN [Concomitant]
  4. ALLOPURINOL [Concomitant]

REACTIONS (1)
  - RASH PAPULAR [None]
